FAERS Safety Report 23404374 (Version 1)
Quarter: 2024Q1

REPORT INFORMATION
  Report Type: Spontaneous
  Country: US (occurrence: US)
  Receive Date: 20240116
  Receipt Date: 20240116
  Transmission Date: 20240410
  Serious: No
  Sender: FDA-Public Use
  Company Number: US-JNJFOC-20240100755

PATIENT
  Age: 3 Year

DRUGS (2)
  1. CHILDRENS MOTRIN [Suspect]
     Active Substance: IBUPROFEN
     Indication: Product used for unknown indication
     Dosage: DOCTOR RECOMMENDED 7 MILLILITERS, BUT WE GAVE THEM A DOUBLE DOSE
     Route: 065
  2. CHILDRENS TYLENOL [Suspect]
     Active Substance: ACETAMINOPHEN
     Indication: Product used for unknown indication
     Dosage: E DOCTOR RECOMMENDED 7 MILLILITERS, BUT WE GAVE THEM A DOUBLE DOSE
     Route: 065

REACTIONS (1)
  - Incorrect dose administered [Unknown]
